FAERS Safety Report 8417313-9 (Version None)
Quarter: 2012Q2

REPORT INFORMATION
  Report Type: 
  Country: None (occurrence: None)
  Receive Date: 20120606
  Receipt Date: 20120530
  Transmission Date: 20120825
  Serious: No
  Sender: FDA-Public Use
  Company Number: DE-UCBSA-058583

PATIENT
  Sex: Female

DRUGS (3)
  1. IBUPROFEN [Concomitant]
     Indication: RHEUMATOID ARTHRITIS
     Dates: start: 20110401
  2. AMITRIPTYLINE HCL [Concomitant]
     Indication: INSOMNIA
     Dates: start: 20110801
  3. CIMZIA [Suspect]
     Indication: RHEUMATOID ARTHRITIS
     Dates: start: 20100412, end: 20120402

REACTIONS (1)
  - HERPES ZOSTER [None]
